FAERS Safety Report 11681996 (Version 7)
Quarter: 2016Q2

REPORT INFORMATION
  Report Type: Report from Study
  Country: US (occurrence: US)
  Receive Date: 20151029
  Receipt Date: 20160504
  Transmission Date: 20160815
  Serious: Yes (Hospitalization, Other)
  Sender: FDA-Public Use
  Company Number: US-MALLINCKRODT-T201502994

PATIENT
  Age: 62 Year
  Sex: Female
  Weight: 88 kg

DRUGS (10)
  1. REPOSITORY CORTICOTROPIN INJECTION [Suspect]
     Active Substance: CORTICOTROPIN
     Dosage: 80 UNITS TWICE WEEKLY
     Route: 058
     Dates: start: 201602, end: 2016
  2. PREDNISONE. [Suspect]
     Active Substance: PREDNISONE
     Indication: PRODUCT USED FOR UNKNOWN INDICATION
     Dosage: UNK
     Route: 065
     Dates: start: 1970, end: 201506
  3. REPOSITORY CORTICOTROPIN INJECTION [Suspect]
     Active Substance: CORTICOTROPIN
     Indication: NEPHROTIC SYNDROME
     Dosage: 40 UNITS, 1-2 TIMES WKLY
     Route: 058
     Dates: start: 20150609, end: 2015
  4. INSULIN [Concomitant]
     Active Substance: INSULIN NOS
  5. REPOSITORY CORTICOTROPIN INJECTION [Suspect]
     Active Substance: CORTICOTROPIN
     Indication: RHEUMATOID ARTHRITIS
     Dosage: 80 UNITS, TWICE WKLY
     Route: 058
     Dates: start: 20150112, end: 201506
  6. GLYBURIDE. [Concomitant]
     Active Substance: GLYBURIDE
  7. AMLODIPINE [Concomitant]
     Active Substance: AMLODIPINE BESYLATE
  8. REPOSITORY CORTICOTROPIN INJECTION [Suspect]
     Active Substance: CORTICOTROPIN
     Dosage: 80 UNITS SUN + 40 UNITS WED
     Route: 058
     Dates: start: 2016
  9. HYDRALAZINE [Concomitant]
     Active Substance: HYDRALAZINE HYDROCHLORIDE
  10. CLONIDINE. [Concomitant]
     Active Substance: CLONIDINE

REACTIONS (23)
  - Pain in extremity [Recovering/Resolving]
  - Infection [Not Recovered/Not Resolved]
  - Renal impairment [Not Recovered/Not Resolved]
  - Fluid retention [Not Recovered/Not Resolved]
  - Red blood cell sedimentation rate increased [Not Recovered/Not Resolved]
  - Nausea [Unknown]
  - Anaemia [Not Recovered/Not Resolved]
  - Malaise [Not Recovered/Not Resolved]
  - Sciatica [Recovering/Resolving]
  - Blood iron decreased [Not Recovered/Not Resolved]
  - Arthralgia [Recovering/Resolving]
  - Gait disturbance [Unknown]
  - Blood parathyroid hormone increased [Not Recovered/Not Resolved]
  - Pain [Not Recovered/Not Resolved]
  - Skin ulcer [Not Recovered/Not Resolved]
  - Blood glucose increased [Recovered/Resolved]
  - Blood calcium decreased [Not Recovered/Not Resolved]
  - Swelling face [Unknown]
  - Oedema peripheral [Not Recovered/Not Resolved]
  - Weight increased [Not Recovered/Not Resolved]
  - Erythema [Unknown]
  - Fatigue [Not Recovered/Not Resolved]
  - Therapy cessation [Recovered/Resolved]

NARRATIVE: CASE EVENT DATE: 201506
